FAERS Safety Report 10230142 (Version 1)
Quarter: 2014Q2

REPORT INFORMATION
  Report Type: Spontaneous
  Country: US (occurrence: None)
  Receive Date: 20140610
  Receipt Date: 20140610
  Transmission Date: 20141212
  Serious: Yes (Other)
  Sender: FDA-Public Use
  Company Number: None

PATIENT
  Age: 12 Year
  Sex: Female
  Weight: 51.71 kg

DRUGS (2)
  1. DEPAKOTE [Suspect]
     Indication: EPILEPSY
     Route: 048
  2. DEPAKOTE [Suspect]
     Indication: SEVERE MYOCLONIC EPILEPSY OF INFANCY
     Route: 048

REACTIONS (1)
  - Unevaluable event [None]
